FAERS Safety Report 5104994-0 (Version None)
Quarter: 2006Q3

REPORT INFORMATION
  Report Type: 
  Country: None (occurrence: None)
  Receive Date: 20060914
  Receipt Date: 20060901
  Transmission Date: 20061208
  Serious: Yes (Other)
  Sender: FDA-Public Use
  Company Number: GR-BRISTOL-MYERS SQUIBB COMPANY-13495197

PATIENT
  Age: 68 Year
  Sex: Male

DRUGS (5)
  1. KARVEA TABS 300 MG [Suspect]
     Indication: HYPERTENSION
     Dosage: DURATION: 1 YEAR, STOPPED FOR A FEW MONTHS AND RE-STARTED APPROX. AT THE END OF JUN-2006
     Route: 048
     Dates: start: 20050101, end: 20060826
  2. HYGROTON [Suspect]
  3. BETASERC [Concomitant]
     Dosage: DOSAGE: 8 MG (1 TAB IN THE MORNING, HALF TAB AT NOON, 1 TAB IN EVENING)
     Dates: start: 20060806, end: 20060826
  4. NOOTROP [Concomitant]
     Dates: start: 20060806, end: 20060826
  5. VITAMINS + IRON [Concomitant]

REACTIONS (4)
  - DUODENITIS [None]
  - GASTRIC HAEMORRHAGE [None]
  - GASTRIC ULCER [None]
  - MELAENA [None]
